FAERS Safety Report 16076514 (Version 2)
Quarter: 2019Q1

REPORT INFORMATION
  Report Type: Spontaneous
  Country: GB (occurrence: GB)
  Receive Date: 20190315
  Receipt Date: 20190327
  Transmission Date: 20190418
  Serious: Yes (Death, Hospitalization)
  Sender: FDA-Public Use
  Company Number: GB-ACCORD-112937

PATIENT
  Age: 65 Year
  Sex: Male

DRUGS (12)
  1. BISOPROLOL [Concomitant]
     Active Substance: BISOPROLOL
  2. LANSOPRAZOLE. [Concomitant]
     Active Substance: LANSOPRAZOLE
  3. TEGRETOL [Concomitant]
     Active Substance: CARBAMAZEPINE
  4. GLYCERYL TRINITRATE [Concomitant]
     Active Substance: NITROGLYCERIN
  5. INFLUENZA VIRUS VACCINE POLYVA [Concomitant]
     Active Substance: INFLUENZA VIRUS VACCINE
  6. MONOMIL XL [Concomitant]
     Active Substance: ISOSORBIDE MONONITRATE
  7. AMLODIPINE [Concomitant]
     Active Substance: AMLODIPINE BESYLATE
  8. MACROGOL/MACROGOL STEARATE [Concomitant]
  9. SIMVASTATIN. [Suspect]
     Active Substance: SIMVASTATIN
     Indication: MYOCARDIAL ISCHAEMIA
     Dosage: NIGHT
     Route: 048
     Dates: start: 20130828
  10. ACETYLSALICYLIC ACID [Concomitant]
     Active Substance: ASPIRIN
  11. PHENOBARBITAL. [Concomitant]
     Active Substance: PHENOBARBITAL
  12. DIHYDROCODEINE [Concomitant]
     Active Substance: DIHYDROCODEINE

REACTIONS (7)
  - Abdominal pain upper [Unknown]
  - Sepsis [Fatal]
  - Pallor [Unknown]
  - Bradycardia [Unknown]
  - Cold sweat [Unknown]
  - Hyperhidrosis [Unknown]
  - Pancreatitis acute [Not Recovered/Not Resolved]

NARRATIVE: CASE EVENT DATE: 20181005
